FAERS Safety Report 18530427 (Version 2)
Quarter: 2020Q4

REPORT INFORMATION
  Report Type: Report from Study
  Country: None (occurrence: IT)
  Receive Date: 20201121
  Receipt Date: 20201202
  Transmission Date: 20210114
  Serious: Yes (Hospitalization)
  Sender: FDA-Public Use
  Company Number: IT-ABBVIE-20K-083-3658264-00

PATIENT
  Age: 67 Year
  Sex: Male

DRUGS (24)
  1. DEXAMETHASONE. [Suspect]
     Active Substance: DEXAMETHASONE
     Route: 048
     Dates: start: 20180621, end: 20200403
  2. VELCADE [Suspect]
     Active Substance: BORTEZOMIB
     Dosage: C9 +: D1, 8, 15, 16, 22 OF 35 DAY CYCLE (1.86 MG)
     Route: 058
     Dates: start: 20191128, end: 20200611
  3. VELCADE [Suspect]
     Active Substance: BORTEZOMIB
     Dosage: C9 +: D1, 8, 15, 16, 22 OF 35 DAY CYCLE (1.91 MG)
     Route: 058
     Dates: start: 20191107, end: 20201114
  4. ACICLOVIR [Concomitant]
     Active Substance: ACYCLOVIR
     Indication: HERPES ZOSTER
     Route: 048
     Dates: start: 20170605
  5. OMEPRAZOLO MYLAN [Concomitant]
     Active Substance: OMEPRAZOLE SODIUM
     Indication: GASTRITIS PROPHYLAXIS
     Route: 048
     Dates: start: 2013
  6. VELCADE [Suspect]
     Active Substance: BORTEZOMIB
     Dosage: C9 +: D1, 8, 15, 16, 22 OF 35 DAY CYCLE (1.93 MG)
     Route: 058
     Dates: start: 20180307, end: 20180621
  7. MAGNESIUM [Concomitant]
     Active Substance: MAGNESIUM
     Indication: MINERAL SUPPLEMENTATION
     Route: 048
     Dates: start: 20190813
  8. VELCADE [Suspect]
     Active Substance: BORTEZOMIB
     Dosage: C9 +: D1, 8, 15, 16, 22 OF 35 DAY CYCLE (2 MG)
     Route: 058
     Dates: start: 20180307, end: 20180621
  9. DEXAMETHASONE. [Suspect]
     Active Substance: DEXAMETHASONE
     Route: 048
     Dates: start: 20180606, end: 20180608
  10. VELCADE [Suspect]
     Active Substance: BORTEZOMIB
     Indication: PLASMA CELL MYELOMA
     Dosage: C1-8:D1, 4, 8 AND 11 OF 21 DAY CYCLE;C9 +: D1, 8, 15, 16, 22 OF 35 DAY CYCLE (1.99 MG)
     Route: 058
     Dates: start: 20171010, end: 20171121
  11. FLECAINIDE [Concomitant]
     Active Substance: FLECAINIDE
     Indication: ATRIAL FIBRILLATION
     Dosage: 100 MG,2 IN 1D
     Route: 048
     Dates: start: 2013
  12. BACTRIM [Concomitant]
     Active Substance: SULFAMETHOXAZOLE\TRIMETHOPRIM
     Indication: INFECTION PROPHYLAXIS
     Route: 048
     Dates: start: 20190328
  13. VENETOCLAX. [Suspect]
     Active Substance: VENETOCLAX
     Indication: PLASMA CELL MYELOMA
     Route: 048
  14. DEXAMETHASONE. [Suspect]
     Active Substance: DEXAMETHASONE
     Indication: PLASMA CELL MYELOMA
     Route: 048
     Dates: start: 20200416, end: 20201023
  15. VELCADE [Suspect]
     Active Substance: BORTEZOMIB
     Dosage: 1-8:D1, 4, 8 + 11 OF 21 DAY CYCLE (1.94 MG)
     Route: 058
     Dates: start: 20170726, end: 20170929
  16. VELCADE [Suspect]
     Active Substance: BORTEZOMIB
     Dosage: C1-8:D1, 4, 8 AND 11 OF 21 DAY CYCLE
     Route: 058
     Dates: start: 20170606, end: 20170616
  17. VELCADE [Suspect]
     Active Substance: BORTEZOMIB
     Dosage: C9 +: D1, 8, 15, 16, 22 OF 35 DAY CYCLE (1.84 MG)
     Route: 058
     Dates: start: 20200625, end: 20201015
  18. VELCADE [Suspect]
     Active Substance: BORTEZOMIB
     Dosage: C9 +: D1, 8, 15, 16, 22 OF 35 DAY CYCLE (2 MG)
     Route: 058
     Dates: start: 20180628, end: 20191010
  19. LYRICA [Concomitant]
     Active Substance: PREGABALIN
     Indication: NEUROPATHY PERIPHERAL
     Route: 048
     Dates: start: 20200521
  20. VELCADE [Suspect]
     Active Substance: BORTEZOMIB
     Dosage: C9 +: D1, 8, 15, 16, 22 OF 35 DAY CYCLE (1.83 MG)
     Route: 058
     Dates: start: 20180110, end: 20180221
  21. VELCADE [Suspect]
     Active Substance: BORTEZOMIB
     Dosage: C1-8:D1, 4, 8 + 11 OF 21 DAY CYCLE (2.52 MG)
     Route: 058
     Dates: start: 20170627, end: 20170630
  22. ATENOLOLO [Concomitant]
     Active Substance: ATENOLOL
     Indication: ATRIAL FIBRILLATION
     Route: 048
  23. AUGMENTIN [Concomitant]
     Active Substance: AMOXICILLIN\CLAVULANATE POTASSIUM
     Indication: ANTIBIOTIC PROPHYLAXIS
     Dosage: 2 GM (1 GM,2 IN 1 D)
     Route: 048
     Dates: start: 20190328
  24. BACTRIM [Concomitant]
     Active Substance: SULFAMETHOXAZOLE\TRIMETHOPRIM
     Indication: ANTIBIOTIC PROPHYLAXIS
     Dosage: DOSE: 800+160 MG (2 IN 1 D)?DOSE: 800+160 MG (3 IN 1 WK)
     Route: 048
     Dates: start: 20170606, end: 20190327

REACTIONS (1)
  - Coronavirus infection [Not Recovered/Not Resolved]

NARRATIVE: CASE EVENT DATE: 20201024
